FAERS Safety Report 10626369 (Version 1)
Quarter: 2014Q4

REPORT INFORMATION
  Report Type: Other
  Country: US (occurrence: US)
  Receive Date: 20141204
  Receipt Date: 20141204
  Transmission Date: 20150529
  Serious: Yes (Hospitalization)
  Sender: FDA-Public Use
  Company Number: US-ENDO PHARMACEUTICALS INC-AMOX20140048

PATIENT
  Age: 14 Year
  Sex: Female

DRUGS (9)
  1. AMOXICILLIN CAPSULES [Suspect]
     Active Substance: AMOXICILLIN
     Indication: COUGH
     Dosage: ONE DOSE
     Route: 065
  2. AMOXICILLIN CAPSULES 500MG [Suspect]
     Active Substance: AMOXICILLIN
     Indication: MALAISE
  3. PSEUDOEPHEDRINE [Suspect]
     Active Substance: PSEUDOEPHEDRINE
     Indication: MALAISE
  4. AMOXICILLIN CAPSULES 500MG [Suspect]
     Active Substance: AMOXICILLIN
     Indication: OROPHARYNGEAL PAIN
  5. IBUPROFEN TABLETS [Suspect]
     Active Substance: IBUPROFEN
     Indication: MALAISE
  6. IBUPROFEN TABLETS [Suspect]
     Active Substance: IBUPROFEN
     Indication: OROPHARYNGEAL PAIN
  7. IBUPROFEN TABLETS [Suspect]
     Active Substance: IBUPROFEN
     Indication: COUGH
     Dosage: UNKNOWN
     Route: 065
  8. PSEUDOEPHEDRINE [Suspect]
     Active Substance: PSEUDOEPHEDRINE
     Indication: COUGH
     Dosage: UNKNOWN
     Route: 065
  9. PSEUDOEPHEDRINE [Suspect]
     Active Substance: PSEUDOEPHEDRINE
     Indication: OROPHARYNGEAL PAIN

REACTIONS (1)
  - Drug reaction with eosinophilia and systemic symptoms [Recovered/Resolved]
